FAERS Safety Report 6843566-4 (Version None)
Quarter: 2010Q3

REPORT INFORMATION
  Report Type: 
  Country: None (occurrence: None)
  Receive Date: 20100715
  Receipt Date: 20100707
  Transmission Date: 20110219
  Serious: Yes (Other)
  Sender: FDA-Public Use
  Company Number: US-JNJFOC-20100702691

PATIENT
  Sex: Female
  Weight: 86.18 kg

DRUGS (4)
  1. REMICADE [Suspect]
     Indication: RHEUMATOID ARTHRITIS
     Dosage: APPROXIMATELY 5 YEARS
     Route: 042
  2. SOLU-MEDROL [Concomitant]
  3. METHOTREXATE [Concomitant]
     Indication: RHEUMATOID ARTHRITIS
  4. LYRICA [Concomitant]
     Indication: FIBROMATOSIS

REACTIONS (9)
  - CONVULSION [None]
  - DYSPNOEA [None]
  - EYE PRURITUS [None]
  - EYE SWELLING [None]
  - GINGIVAL BLEEDING [None]
  - GINGIVAL SWELLING [None]
  - OROPHARYNGEAL BLISTERING [None]
  - RASH PRURITIC [None]
  - SKIN ATROPHY [None]
